FAERS Safety Report 10439027 (Version 3)
Quarter: 2014Q3

REPORT INFORMATION
  Report Type: Spontaneous
  Country: CL (occurrence: CL)
  Receive Date: 20140908
  Receipt Date: 20140930
  Transmission Date: 20150326
  Serious: Yes (Disabling)
  Sender: FDA-Public Use
  Company Number: ALCN2014CL004942

PATIENT
  Age: 40 Year
  Sex: Female

DRUGS (6)
  1. NEVANAC [Suspect]
     Active Substance: NEPAFENAC
     Dosage: 1 DF, UNK
     Route: 047
     Dates: start: 20140821
  2. VIGAMOX [Suspect]
     Active Substance: MOXIFLOXACIN HYDROCHLORIDE
     Dosage: UNK
  3. VIGAMOX [Suspect]
     Active Substance: MOXIFLOXACIN HYDROCHLORIDE
     Dosage: 0.5 MG, UNK
     Route: 047
     Dates: start: 20140821
  4. BSS [Suspect]
     Active Substance: CALCIUM CHLORIDE\MAGNESIUM CHLORIDE\POTASSIUM CHLORIDE\SODIUM ACETATE\SODIUM CHLORIDE\SODIUM CITRATE
     Indication: INTRAOCULAR LENS IMPLANT
     Dosage: 1 UNK, UNK
     Route: 031
     Dates: start: 20140821, end: 20140821
  5. PROPARACAINE HCL [Suspect]
     Active Substance: PROPARACAINE HYDROCHLORIDE
     Dosage: 1 DF, UNK
     Route: 047
     Dates: start: 20140821
  6. MIOSTAT [Suspect]
     Active Substance: CARBACHOL
     Dosage: 1 DF, UNK
     Route: 047
     Dates: start: 20140821

REACTIONS (2)
  - Non-infectious endophthalmitis [Unknown]
  - Blindness unilateral [Unknown]

NARRATIVE: CASE EVENT DATE: 20140822
